FAERS Safety Report 21769848 (Version 1)
Quarter: 2022Q4

REPORT INFORMATION
  Report Type: Spontaneous
  Country: ES (occurrence: ES)
  Receive Date: 20221223
  Receipt Date: 20221223
  Transmission Date: 20230113
  Serious: Yes (Other)
  Sender: FDA-Public Use
  Company Number: ES-SUN PHARMACEUTICAL INDUSTRIES LTD-2022RR-369395

PATIENT
  Age: 16 Year
  Sex: Female

DRUGS (3)
  1. FINGOLIMOD [Suspect]
     Active Substance: FINGOLIMOD
     Indication: Sensory loss
     Dosage: 0.5 MILLIGRAM, DAILY
     Route: 065
  2. METHYLPREDNISOLONE [Suspect]
     Active Substance: METHYLPREDNISOLONE
     Indication: Sensory loss
     Dosage: 1000 MILLIGRAM, UNK
     Route: 048
  3. METHYLPREDNISOLONE [Suspect]
     Active Substance: METHYLPREDNISOLONE
     Dosage: 1000 MILLIGRAM, UNK
     Route: 048

REACTIONS (2)
  - Disease recurrence [Unknown]
  - Therapeutic product effect incomplete [Unknown]
